FAERS Safety Report 4639810-4 (Version None)
Quarter: 2005Q2

REPORT INFORMATION
  Report Type: 
  Country: None (occurrence: None)
  Receive Date: 20050420
  Receipt Date: 20050406
  Transmission Date: 20051028
  Serious: Yes (Disabling)
  Sender: FDA-Public Use
  Company Number: FR-SOLVAY-00205001168

PATIENT
  Sex: Female

DRUGS (3)
  1. ISOPTIN [Concomitant]
     Indication: ILL-DEFINED DISORDER
     Dosage: DAILY DOSE:  UNKNOWN
     Route: 065
  2. UTROGESTAN [Suspect]
     Indication: HORMONE REPLACEMENT THERAPY
     Dosage: DAILY DOSE:  UNKNOWN
     Route: 048
  3. ESTROGEL [Suspect]
     Indication: HORMONE REPLACEMENT THERAPY
     Dosage: DAILY DOSE:  UNKNOWN
     Route: 062
     Dates: start: 19850101

REACTIONS (2)
  - BLINDNESS [None]
  - RETINAL VEIN THROMBOSIS [None]
